FAERS Safety Report 16131762 (Version 1)
Quarter: 2019Q1

REPORT INFORMATION
  Report Type: Spontaneous
  Country: US (occurrence: US)
  Receive Date: 20190225
  Receipt Date: 20190225
  Transmission Date: 20190418
  Serious: No
  Sender: FDA-Public Use
  Company Number: None

PATIENT
  Age: 74 Year
  Sex: Male

DRUGS (1)
  1. REPATHA [Suspect]
     Active Substance: EVOLOCUMAB
     Dates: start: 20181115

REACTIONS (3)
  - Arterial rupture [None]
  - Post procedural complication [None]
  - Coronary artery bypass [None]

NARRATIVE: CASE EVENT DATE: 20190115
